FAERS Safety Report 8217695-7 (Version None)
Quarter: 2012Q1

REPORT INFORMATION
  Report Type: 
  Country: None (occurrence: None)
  Receive Date: 20120319
  Receipt Date: 20120307
  Transmission Date: 20120608
  Serious: Yes (Hospitalization)
  Sender: FDA-Public Use
  Company Number: JP-JNJFOC-20120306573

PATIENT
  Age: 42 Year
  Sex: Male
  Weight: 59.4 kg

DRUGS (10)
  1. LITHIUM CARBONATE [Concomitant]
     Route: 048
  2. PHENOBARBITAL TAB [Concomitant]
     Route: 065
  3. TRIHEXYPHENIDYL HCL [Concomitant]
     Route: 048
  4. BROMAZEPAM [Concomitant]
     Route: 065
  5. FLUNITRAZEPAM [Concomitant]
     Route: 065
  6. ZOPICLONE [Concomitant]
     Route: 048
  7. CHLORPROMAZINE HYDROCHLORIDE TAB [Concomitant]
     Route: 065
  8. PROMETHAZINE HYDROCHLORIDE [Concomitant]
     Route: 065
  9. RISPERDAL [Suspect]
     Indication: PRODUCT USED FOR UNKNOWN INDICATION
     Route: 048
  10. MILNACIPRAN HYDROCHLORIDE [Concomitant]
     Route: 048

REACTIONS (1)
  - PULMONARY EMBOLISM [None]
